FAERS Safety Report 13589684 (Version 1)
Quarter: 2017Q2

REPORT INFORMATION
  Report Type: Spontaneous
  Country: US (occurrence: US)
  Receive Date: 20170527
  Receipt Date: 20170527
  Transmission Date: 20170830
  Serious: Yes (Life-Threatening, Other)
  Sender: FDA-Public Use
  Company Number: None

PATIENT
  Age: 62 Year
  Sex: Female

DRUGS (3)
  1. BISOPROLOL [Suspect]
     Active Substance: BISOPROLOL
     Route: 048
     Dates: start: 20170517, end: 20170522
  2. LISINOPRIL. [Concomitant]
     Active Substance: LISINOPRIL
  3. BRILINTA [Concomitant]
     Active Substance: TICAGRELOR

REACTIONS (4)
  - Malaise [None]
  - Drug ineffective [None]
  - Blood pressure systolic increased [None]
  - Product substitution issue [None]

NARRATIVE: CASE EVENT DATE: 20170522
